FAERS Safety Report 14847429 (Version 6)
Quarter: 2020Q3

REPORT INFORMATION
  Report Type: Spontaneous
  Country: IT (occurrence: IT)
  Receive Date: 20180504
  Receipt Date: 20200924
  Transmission Date: 20201102
  Serious: Yes (Hospitalization, Other)
  Sender: FDA-Public Use
  Company Number: IT-AUROBINDO-AUR-APL-2018-023531

PATIENT
  Age: 43 Year
  Sex: Female

DRUGS (4)
  1. QUETIAPINE FILM?COATED TABLET [Suspect]
     Active Substance: QUETIAPINE
     Indication: INTENTIONAL PRODUCT MISUSE
     Dosage: 10?14 DOSAGE FORMS (AT 8:00 P.M)
     Route: 048
     Dates: start: 20180307, end: 20180307
  2. LORAZEPAM. [Concomitant]
     Active Substance: LORAZEPAM
     Indication: INSOMNIA
     Dosage: UNK
     Route: 048
  3. QUETIAPINE FILM?COATED TABLET [Suspect]
     Active Substance: QUETIAPINE
     Indication: PSYCHOTIC DISORDER
  4. FLURAZEPAM MONOHYDROCHLORIDE [Concomitant]
     Active Substance: FLURAZEPAM MONOHYDROCHLORIDE
     Indication: PSYCHOTIC DISORDER
     Dosage: 10?14 DOSAGE FORMS (AT 8:00 P.M)
     Route: 048
     Dates: start: 20180307, end: 20180307

REACTIONS (3)
  - Sopor [Recovered/Resolved]
  - Loss of consciousness [Recovered/Resolved]
  - Overdose [Recovered/Resolved]

NARRATIVE: CASE EVENT DATE: 20180307
